FAERS Safety Report 9111896 (Version 1)
Quarter: 2013Q1

REPORT INFORMATION
  Report Type: Spontaneous
  Country: US (occurrence: US)
  Receive Date: 20130219
  Receipt Date: 20130219
  Transmission Date: 20140127
  Serious: No
  Sender: FDA-Public Use
  Company Number: US-BRISTOL-MYERS SQUIBB COMPANY-17048471

PATIENT
  Age: 47 Year
  Sex: Female
  Weight: 108.84 kg

DRUGS (7)
  1. ABATACEPT SUBQ INJECTION 125MG/ML [Suspect]
     Indication: RHEUMATOID ARTHRITIS
     Route: 058
     Dates: start: 20120706
  2. METHOTREXATE [Suspect]
  3. CYMBALTA [Concomitant]
  4. FLEXERIL [Concomitant]
  5. FOLIC ACID [Concomitant]
  6. MAGNESIUM [Concomitant]
  7. NEURONTIN [Concomitant]

REACTIONS (1)
  - Upper respiratory tract infection [Unknown]
